FAERS Safety Report 5816537-4 (Version None)
Quarter: 2008Q3

REPORT INFORMATION
  Report Type: 
  Country: None (occurrence: None)
  Receive Date: 20080717
  Receipt Date: 20080717
  Transmission Date: 20090109
  Serious: Yes (Life-Threatening, Hospitalization)
  Sender: FDA-Public Use
  Company Number: None

PATIENT
  Age: 44 Year
  Sex: Female
  Weight: 83.9154 kg

DRUGS (1)
  1. CIPRO [Suspect]
     Indication: PNEUMONIA
     Dosage: 500 MG ONCE DAILY OTHER
     Route: 050
     Dates: start: 20020514, end: 20080707

REACTIONS (24)
  - ABDOMINAL DISTENSION [None]
  - AGEUSIA [None]
  - AMNESIA [None]
  - ANOREXIA [None]
  - ANOSMIA [None]
  - ASTHENIA [None]
  - CHEST PAIN [None]
  - CONTUSION [None]
  - CONVULSION [None]
  - FEELING ABNORMAL [None]
  - GOUT [None]
  - HAEMORRHAGIC DISORDER [None]
  - HEADACHE [None]
  - INSOMNIA [None]
  - JOINT STIFFNESS [None]
  - MYALGIA [None]
  - NO THERAPEUTIC RESPONSE [None]
  - PAIN [None]
  - PAIN IN EXTREMITY [None]
  - PANIC ATTACK [None]
  - RASH [None]
  - SPEECH DISORDER [None]
  - TINNITUS [None]
  - VISION BLURRED [None]
